FAERS Safety Report 6166615-8 (Version None)
Quarter: 2009Q2

REPORT INFORMATION
  Report Type: 
  Country: None (occurrence: None)
  Receive Date: 20090424
  Receipt Date: 20081110
  Transmission Date: 20091009
  Serious: No
  Sender: FDA-Public Use
  Company Number: US-ASTRAZENECA-2008UW25193

PATIENT
  Age: 53 Year
  Sex: Male
  Weight: 90.7 kg

DRUGS (3)
  1. ZOMIG [Suspect]
     Indication: MIGRAINE
     Route: 048
  2. DIVALPROEX SODIUM [Concomitant]
     Indication: MIGRAINE
  3. ACETAMINOPHEN [Concomitant]

REACTIONS (2)
  - PRIAPISM [None]
  - RASH PRURITIC [None]
